FAERS Safety Report 6694252-5 (Version None)
Quarter: 2010Q2

REPORT INFORMATION
  Report Type: 
  Country: None (occurrence: None)
  Receive Date: 20100423
  Receipt Date: 20100316
  Transmission Date: 20101027
  Serious: Yes (Death, Other)
  Sender: FDA-Public Use
  Company Number: US-BAXTER-2010BH001318

PATIENT
  Age: 80 Year
  Sex: Male
  Weight: 68 kg

DRUGS (2)
  1. HEPARIN SODIUM INJECTION [Suspect]
     Indication: HAEMODIALYSIS
     Route: 010
     Dates: start: 20071101, end: 20071101
  2. HEPARIN SODIUM INJECTION [Suspect]
     Route: 010
     Dates: start: 20071201, end: 20080101

REACTIONS (4)
  - ARTERIOSCLEROSIS [None]
  - HYPERTENSION [None]
  - RENAL FAILURE CHRONIC [None]
  - SEPSIS [None]
